FAERS Safety Report 6134087-5 (Version None)
Quarter: 2009Q1

REPORT INFORMATION
  Report Type: 
  Country: None (occurrence: None)
  Receive Date: 20090326
  Receipt Date: 20090303
  Transmission Date: 20090719
  Serious: Yes (Other)
  Sender: FDA-Public Use
  Company Number: TR-ROXANE LABORATORIES, INC.-2009-RO-00199RO

PATIENT
  Age: 26 Year
  Sex: Female

DRUGS (4)
  1. PREDNISONE [Suspect]
     Dosage: 40MG
  2. URSODIOL [Suspect]
  3. CIPROFLOXACIN [Suspect]
     Indication: BRONCHITIS
     Dosage: 1000MG
  4. TACROLIMUS [Concomitant]

REACTIONS (4)
  - CUSHING'S SYNDROME [None]
  - DRUG INEFFECTIVE [None]
  - STEVENS-JOHNSON SYNDROME [None]
  - VANISHING BILE DUCT SYNDROME [None]
